FAERS Safety Report 10429938 (Version 1)
Quarter: 2014Q3

REPORT INFORMATION
  Report Type: Spontaneous
  Country: IT (occurrence: IT)
  Receive Date: 20140904
  Receipt Date: 20140904
  Transmission Date: 20150326
  Serious: Yes (Other)
  Sender: FDA-Public Use
  Company Number: IT-BAYER-2014-131411

PATIENT
  Age: 78 Year
  Sex: Female

DRUGS (2)
  1. CIPROXIN 500 MG FILM-COATED TABLETS [Suspect]
     Active Substance: CIPROFLOXACIN
     Indication: OSTEOMYELITIS CHRONIC
     Dosage: 1000 MG, DAILY
     Route: 048
     Dates: start: 20140630, end: 20140827
  2. CORDARONE [Suspect]
     Active Substance: AMIODARONE HYDROCHLORIDE
     Indication: ATRIAL FIBRILLATION
     Dosage: 200 MG, DAILY
     Route: 048
     Dates: start: 20140530, end: 20140827

REACTIONS (2)
  - Electrocardiogram QT prolonged [Recovering/Resolving]
  - Conduction disorder [None]

NARRATIVE: CASE EVENT DATE: 20140827
